FAERS Safety Report 16851879 (Version 1)
Quarter: 2019Q3

REPORT INFORMATION
  Report Type: Spontaneous
  Country: US (occurrence: US)
  Receive Date: 20190925
  Receipt Date: 20190925
  Transmission Date: 20191005
  Serious: Yes (Hospitalization)
  Sender: FDA-Public Use
  Company Number: US-AMARIN PHARMA, INC.-2019AMR000365

PATIENT
  Age: 54 Year
  Sex: Male
  Weight: 85.35 kg

DRUGS (3)
  1. PRAVACHOL [Concomitant]
     Active Substance: PRAVASTATIN SODIUM
     Indication: BLOOD CHOLESTEROL ABNORMAL
     Dates: start: 2004
  2. VASCEPA [Suspect]
     Active Substance: ICOSAPENT ETHYL
     Indication: CARDIOVASCULAR DISORDER
     Route: 048
     Dates: start: 2013
  3. METOPROLOL. [Concomitant]
     Active Substance: METOPROLOL
     Indication: BLOOD PRESSURE ABNORMAL
     Dates: start: 2011

REACTIONS (5)
  - Prescribed overdose [Not Recovered/Not Resolved]
  - Product odour abnormal [Unknown]
  - Off label use [Not Recovered/Not Resolved]
  - Aortic stenosis [Recovered/Resolved]
  - Aortic valve replacement [Recovered/Resolved]

NARRATIVE: CASE EVENT DATE: 201907
